FAERS Safety Report 7907235-1 (Version None)
Quarter: 2011Q4

REPORT INFORMATION
  Report Type: 
  Country: None (occurrence: None)
  Receive Date: 20111109
  Receipt Date: 20111109
  Transmission Date: 20120403
  Serious: Yes (Hospitalization)
  Sender: FDA-Public Use
  Company Number: None

PATIENT
  Sex: Male
  Weight: 12.6 kg

DRUGS (3)
  1. ETOPOSIDE [Suspect]
     Dosage: 780 MG
  2. CARBOPLATIN [Suspect]
     Dosage: 980 MG
  3. MELPHALAN HYDROCHLORIDE [Suspect]
     Dosage: 120 MG

REACTIONS (21)
  - BLOOD CREATININE INCREASED [None]
  - CULTURE URINE POSITIVE [None]
  - BLOOD UREA INCREASED [None]
  - CARDIOMEGALY [None]
  - MICROANGIOPATHIC HAEMOLYTIC ANAEMIA [None]
  - GENERALISED OEDEMA [None]
  - CARDIAC ARREST [None]
  - ABDOMINAL PAIN [None]
  - PULMONARY OEDEMA [None]
  - PLEURAL DISORDER [None]
  - BLOOD LACTATE DEHYDROGENASE INCREASED [None]
  - PULSE ABSENT [None]
  - THROMBOTIC MICROANGIOPATHY [None]
  - HAEMATEMESIS [None]
  - ENTEROCOCCAL INFECTION [None]
  - PLATELET COUNT DECREASED [None]
  - OBSTRUCTIVE AIRWAYS DISORDER [None]
  - INTRAVASCULAR HAEMOLYSIS [None]
  - ECCHYMOSIS [None]
  - HAEMORRHAGE [None]
  - ORBITAL OEDEMA [None]
